FAERS Safety Report 6617884-9 (Version None)
Quarter: 2010Q1

REPORT INFORMATION
  Report Type: 
  Country: None (occurrence: None)
  Receive Date: 20100308
  Receipt Date: 20100224
  Transmission Date: 20100710
  Serious: Yes (Other)
  Sender: FDA-Public Use
  Company Number: GB-ELI_LILLY_AND_COMPANY-GB201002006547

PATIENT
  Age: 27 Year
  Sex: Male
  Weight: 90 kg

DRUGS (4)
  1. ZYPREXA [Suspect]
     Indication: SCHIZOPHRENIA
     Dosage: 20 MG, UNK
     Route: 048
     Dates: start: 20091208, end: 20100131
  2. CLONAZEPAM [Concomitant]
     Dosage: 1 MG, 3/D
     Route: 048
     Dates: start: 20091215
  3. ACETAMINOPHEN AND CODEINE PHOSPHATE [Concomitant]
     Indication: PAIN
     Dosage: 2 D/F, AS NEEDED
     Route: 048
     Dates: start: 20091126
  4. LORAZEPAM [Concomitant]
     Indication: AGITATION
     Dosage: UNK, AS NEEDED
     Route: 048
     Dates: start: 20091124

REACTIONS (1)
  - RASH PRURITIC [None]
